FAERS Safety Report 5871624-X (Version None)
Quarter: 2008Q3

REPORT INFORMATION
  Report Type: 
  Country: None (occurrence: None)
  Receive Date: 20080902
  Receipt Date: 20080815
  Transmission Date: 20090109
  Serious: Yes (Hospitalization, Disabling, Other)
  Sender: FDA-Public Use
  Company Number: 94133

PATIENT
  Age: 79 Year
  Sex: Female

DRUGS (1)
  1. NAPROXEN [Suspect]
     Indication: RHEUMATOID ARTHRITIS
     Dosage: 250MG/2/1DAYS/ORAL
     Route: 048
     Dates: end: 20080716

REACTIONS (4)
  - ANAEMIA [None]
  - GASTRITIS [None]
  - LEFT VENTRICULAR FAILURE [None]
  - PULMONARY OEDEMA [None]
